FAERS Safety Report 6184233-2 (Version None)
Quarter: 2009Q2

REPORT INFORMATION
  Report Type: 
  Country: None (occurrence: None)
  Receive Date: 20090506
  Receipt Date: 20090429
  Transmission Date: 20091009
  Serious: Yes (Hospitalization)
  Sender: FDA-Public Use
  Company Number: 2009002746

PATIENT
  Age: 67 Year
  Sex: Female
  Weight: 59.7 kg

DRUGS (12)
  1. TREANDA [Suspect]
     Indication: B-CELL LYMPHOMA
     Dosage: 137 MG, INTRAVENOUS
     Route: 042
     Dates: start: 20090205
  2. VELCADE [Suspect]
     Indication: B-CELL LYMPHOMA
     Dosage: 2.43 MG, INTRAVENOUS
     Route: 042
     Dates: start: 20090205
  3. RITUXAN [Suspect]
     Indication: B-CELL LYMPHOMA
     Dosage: 570 MG, INTRAVENOUS
     Route: 042
     Dates: start: 20090205
  4. VALTREX [Concomitant]
  5. NEURONTIN [Concomitant]
  6. LISINOPRIL [Concomitant]
  7. CIPRO (CYPROHEPTADINE HYDROCHLORIDE) [Concomitant]
  8. GLIMEPIRIDE [Concomitant]
  9. JANUVIA [Concomitant]
  10. IMODIUM [Concomitant]
  11. LEVOTHYROXINE SODIUM [Concomitant]
  12. VYTORIN [Concomitant]

REACTIONS (14)
  - ASTHENIA [None]
  - BLOOD GLUCOSE INCREASED [None]
  - DIARRHOEA [None]
  - DYSSTASIA [None]
  - HAEMATOCRIT DECREASED [None]
  - HEAD INJURY [None]
  - HYPOTENSION [None]
  - LOSS OF CONSCIOUSNESS [None]
  - NAUSEA [None]
  - NEUTROPHIL COUNT DECREASED [None]
  - PLATELET COUNT DECREASED [None]
  - SYNCOPE [None]
  - URINARY INCONTINENCE [None]
  - VOMITING [None]
